FAERS Safety Report 5633050-8 (Version None)
Quarter: 2008Q1

REPORT INFORMATION
  Report Type: 
  Country: None (occurrence: None)
  Receive Date: 20080214
  Receipt Date: 20080201
  Transmission Date: 20080703
  Serious: Yes (Death, Hospitalization, Other)
  Sender: FDA-Public Use
  Company Number: 2008US000256

PATIENT
  Age: 77 Year
  Sex: Male

DRUGS (17)
  1. AMBISOME [Suspect]
     Indication: BRONCHOPULMONARY ASPERGILLOSIS
     Dosage: 3.9 MG/KG, UID/QD, IV NOS, 200 MG, UID/QD, IV NOS
     Route: 042
     Dates: start: 20071005, end: 20071010
  2. AMBISOME [Suspect]
     Indication: BRONCHOPULMONARY ASPERGILLOSIS
     Dosage: 3.9 MG/KG, UID/QD, IV NOS, 200 MG, UID/QD, IV NOS
     Route: 042
     Dates: start: 20071011, end: 20071014
  3. DECADRON [Suspect]
     Indication: BRONCHOPULMONARY ASPERGILLOSIS
     Dosage: 6 MG, UID/QD
     Dates: start: 20070910, end: 20071014
  4. DIFLUCAN [Concomitant]
  5. FUNGUARD (MICAFUNGIN SODIUM) [Concomitant]
  6. MAXIPIME [Concomitant]
  7. VFEND [Concomitant]
  8. DENOSINE (GANCICLOVIR) [Concomitant]
  9. POLYGLOBIN (IMMUNOGLOBULINS) [Concomitant]
  10. MINOCYCLINE HCL [Concomitant]
  11. ACYCLOVIR [Concomitant]
  12. BACTRIM [Concomitant]
  13. OMEPRAL [Concomitant]
  14. ANTITHROMBIN III (ANTITHROMBIN III) [Concomitant]
  15. AZACTAM [Concomitant]
  16. VANCOMYCIN [Concomitant]
  17. MEROPEN (MEROPENEM) [Concomitant]

REACTIONS (13)
  - ALANINE AMINOTRANSFERASE INCREASED [None]
  - ANTITHROMBIN III DEFICIENCY [None]
  - ASPARTATE AMINOTRANSFERASE INCREASED [None]
  - BLOOD BILIRUBIN INCREASED [None]
  - BLOOD CREATINE INCREASED [None]
  - BLOOD UREA INCREASED [None]
  - CREATININE RENAL CLEARANCE INCREASED [None]
  - HAEMODIALYSIS [None]
  - HYPERKALAEMIA [None]
  - LIVER DISORDER [None]
  - PNEUMONIA [None]
  - RENAL DISORDER [None]
  - RESPIRATION ABNORMAL [None]
